FAERS Safety Report 5258654-6 (Version None)
Quarter: 2007Q1

REPORT INFORMATION
  Report Type: 
  Country: None (occurrence: None)
  Receive Date: 20070305
  Receipt Date: 20070219
  Transmission Date: 20070707
  Serious: Yes (Hospitalization)
  Sender: FDA-Public Use
  Company Number: THYR-10409

PATIENT
  Age: 69 Year
  Sex: Male

DRUGS (4)
  1. THYROGEN [Suspect]
     Indication: GOITRE
     Dosage: 0.2 MG QD IM
     Route: 030
  2. METHIMAZOLE [Concomitant]
  3. ANTIHYPERTENSIVE DRUGS (UNSPECIFIED) [Concomitant]
  4. PSYCHIATRIC DRUGS (UNSPECIFIED) [Concomitant]

REACTIONS (4)
  - AGITATION [None]
  - PALPITATIONS [None]
  - THYROXINE FREE INCREASED [None]
  - TREMOR [None]
